FAERS Safety Report 4422550-4 (Version None)
Quarter: 2004Q3

REPORT INFORMATION
  Report Type: 
  Country: None (occurrence: None)
  Receive Date: 20040810
  Receipt Date: 20040804
  Transmission Date: 20050211
  Serious: Yes (Other)
  Sender: FDA-Public Use
  Company Number: PHBS2004VE10260

PATIENT
  Age: 76 Year
  Sex: Female

DRUGS (4)
  1. DIOVAN [Suspect]
     Dosage: 80 MG/DAY
     Route: 048
     Dates: start: 19980101
  2. CLOPIDOGREL [Concomitant]
  3. LECARDIPINA [Concomitant]
  4. NIMODIPINE [Concomitant]

REACTIONS (1)
  - POLYCYTHAEMIA [None]
